FAERS Safety Report 6429941-0 (Version None)
Quarter: 2009Q4

REPORT INFORMATION
  Report Type: 
  Country: None (occurrence: None)
  Receive Date: 20091106
  Receipt Date: 20091030
  Transmission Date: 20100525
  Serious: Yes (Hospitalization)
  Sender: FDA-Public Use
  Company Number: JP-JNJFOC-20090902845

PATIENT
  Age: 60 Year
  Sex: Female

DRUGS (1)
  1. RISPERDAL ORO DISPERSIBLE [Suspect]
     Indication: DELIRIUM
     Route: 048

REACTIONS (3)
  - ALTERED STATE OF CONSCIOUSNESS [None]
  - BLOOD GLUCOSE INCREASED [None]
  - OFF LABEL USE [None]
